FAERS Safety Report 5172165-8 (Version None)
Quarter: 2006Q4

REPORT INFORMATION
  Report Type: 
  Country: None (occurrence: None)
  Receive Date: 20061205
  Receipt Date: 20061121
  Transmission Date: 20070319
  Serious: Yes (Death, Hospitalization, Other)
  Sender: FDA-Public Use
  Company Number: 2006112873

PATIENT
  Age: 54 Year
  Sex: Female
  Weight: 58.9676 kg

DRUGS (15)
  1. NEURONTIN [Suspect]
     Indication: CONVERSION DISORDER
     Dosage: 2400 MG (800 MG, 3 IN 1 D)
     Dates: start: 19990301
  2. NEURONTIN [Suspect]
     Indication: MYOCLONIC EPILEPSY
     Dosage: 2400 MG (800 MG, 3 IN 1 D)
     Dates: start: 19990301
  3. TEGRETOL [Concomitant]
  4. SYNTHROID [Concomitant]
  5. KLONOPIN [Concomitant]
  6. REMERON [Concomitant]
  7. ESTRATEST [Concomitant]
  8. PROVERA [Concomitant]
  9. PROPULSID [Concomitant]
  10. DILANTIN [Concomitant]
  11. WELLBUTRIN SR [Concomitant]
  12. CYTOMEL [Concomitant]
  13. MACROBID [Concomitant]
  14. DIAZEPAM [Concomitant]
  15. METHYLPHENIDATE HCL [Concomitant]

REACTIONS (8)
  - ANOXIC ENCEPHALOPATHY [None]
  - APNOEA [None]
  - BRAIN OEDEMA [None]
  - DRUG INEFFECTIVE [None]
  - INJURY ASPHYXIATION [None]
  - INTENTIONAL SELF-INJURY [None]
  - PULSE ABSENT [None]
  - SUICIDE ATTEMPT [None]
